FAERS Safety Report 8397448-X (Version None)
Quarter: 2012Q2

REPORT INFORMATION
  Report Type: 
  Country: None (occurrence: None)
  Receive Date: 20120529
  Receipt Date: 20120529
  Transmission Date: 20120825
  Serious: Yes (Hospitalization)
  Sender: FDA-Public Use
  Company Number: None

PATIENT
  Age: 26 Year
  Sex: Female
  Weight: 68.0396 kg

DRUGS (2)
  1. VIIBRYD [Suspect]
     Indication: PSYCHOTIC DISORDER
     Dosage: DAILY
     Dates: start: 20111004, end: 20111126
  2. VIIBRYD [Suspect]
     Indication: DEPRESSION
     Dosage: DAILY
     Dates: start: 20111004, end: 20111126

REACTIONS (6)
  - FEELING ABNORMAL [None]
  - ANXIETY [None]
  - STRESS [None]
  - INSOMNIA [None]
  - PSYCHOTIC DISORDER [None]
  - JUDGEMENT IMPAIRED [None]
